FAERS Safety Report 8816994 (Version 1)
Quarter: 2012Q4

REPORT INFORMATION
  Report Type: Spontaneous
  Country: US (occurrence: None)
  Receive Date: 20121003
  Receipt Date: 20121003
  Transmission Date: 20130627
  Serious: No
  Sender: FDA-Public Use
  Company Number: None

PATIENT
  Age: 68 Year
  Sex: Male
  Weight: 73.1 kg

DRUGS (1)
  1. EPOETIN ALFA [Suspect]
     Dosage: 4000 UNITS Other SQ
     Route: 058
     Dates: start: 20040929, end: 20120819

REACTIONS (1)
  - Myocardial infarction [None]
